FAERS Safety Report 8287747-4 (Version None)
Quarter: 2012Q2

REPORT INFORMATION
  Report Type: 
  Country: None (occurrence: None)
  Receive Date: 20120416
  Receipt Date: 20120413
  Transmission Date: 20120825
  Serious: Yes (Other)
  Sender: FDA-Public Use
  Company Number: JP-PFIZER INC-2012092941

PATIENT
  Sex: Female

DRUGS (4)
  1. MICARDIS [Concomitant]
     Route: 048
  2. LIPITOR [Concomitant]
     Route: 048
  3. NORVASC [Suspect]
     Dosage: 10 MG, 1X/DAY
     Route: 048
  4. ALLOPURINOL [Concomitant]
     Route: 048

REACTIONS (1)
  - RENAL IMPAIRMENT [None]
